FAERS Safety Report 22984760 (Version 2)
Quarter: 2023Q4

REPORT INFORMATION
  Report Type: Spontaneous
  Country: JP (occurrence: JP)
  Receive Date: 20230926
  Receipt Date: 20231001
  Transmission Date: 20240110
  Serious: Yes (Hospitalization, Other)
  Sender: FDA-Public Use
  Company Number: JP-SA-2023SA285264

PATIENT
  Age: 85 Year
  Sex: Female
  Weight: 48.4 kg

DRUGS (2)
  1. CLOPIDOGREL BISULFATE [Suspect]
     Active Substance: CLOPIDOGREL BISULFATE
     Indication: Atrial fibrillation
     Dosage: 75 MG, QD
     Route: 065
  2. DABIGATRAN [Suspect]
     Active Substance: DABIGATRAN
     Indication: Atrial fibrillation
     Dosage: 110 MG, QD
     Route: 065

REACTIONS (4)
  - Bladder tamponade [Recovered/Resolved]
  - Urinary bladder haemorrhage [Recovered/Resolved]
  - Haematuria [Recovering/Resolving]
  - Urinary retention [Recovering/Resolving]
